FAERS Safety Report 15736999 (Version 1)
Quarter: 2018Q4

REPORT INFORMATION
  Report Type: Spontaneous
  Country: BR (occurrence: BR)
  Receive Date: 20181218
  Receipt Date: 20181218
  Transmission Date: 20190205
  Serious: Yes (Hospitalization)
  Sender: FDA-Public Use
  Company Number: BR-PFIZER INC-2018495029

PATIENT
  Age: 72 Year
  Sex: Female

DRUGS (3)
  1. ALDAZIDA [Suspect]
     Active Substance: HYDROCHLOROTHIAZIDE\SPIRONOLACTONE
     Indication: SWELLING
     Dosage: 2 TABLETS OF 50 MG, 2X/DAY
     Dates: start: 2008, end: 201811
  2. PANTOPRAZOLE [Concomitant]
     Active Substance: PANTOPRAZOLE
     Dosage: UNK
     Dates: start: 1998
  3. ALDAZIDA [Suspect]
     Active Substance: HYDROCHLOROTHIAZIDE\SPIRONOLACTONE
     Indication: OEDEMA PERIPHERAL
     Dosage: 1 TABLET OF 50 MG, 1X/DAY
     Dates: start: 1988, end: 2008

REACTIONS (3)
  - Intentional product use issue [Unknown]
  - Blood glucose increased [Unknown]
  - Vein disorder [Recovered/Resolved]

NARRATIVE: CASE EVENT DATE: 2008
